FAERS Safety Report 6310468-1 (Version None)
Quarter: 2009Q3

REPORT INFORMATION
  Report Type: 
  Country: None (occurrence: None)
  Receive Date: 20090811
  Receipt Date: 20090623
  Transmission Date: 20100115
  Serious: No
  Sender: FDA-Public Use
  Company Number: 1000006983

PATIENT
  Age: 72 Year
  Sex: Female

DRUGS (15)
  1. SAVELLA [Suspect]
     Indication: FIBROMYALGIA
     Dosage: 12.5 MG (12.5 MG, 1 IN 1 D), ORAL;25 MG )12.5 MG,2 IN 1 D), ORAL; 50 MG (25 MG, 2 IN 1 D), ORAL
     Route: 048
     Dates: start: 20090602, end: 20090602
  2. SAVELLA [Suspect]
     Indication: FIBROMYALGIA
     Dosage: 12.5 MG (12.5 MG, 1 IN 1 D), ORAL;25 MG )12.5 MG,2 IN 1 D), ORAL; 50 MG (25 MG, 2 IN 1 D), ORAL
     Route: 048
     Dates: start: 20090603, end: 20090604
  3. SAVELLA [Suspect]
     Indication: FIBROMYALGIA
     Dosage: 12.5 MG (12.5 MG, 1 IN 1 D), ORAL;25 MG )12.5 MG,2 IN 1 D), ORAL; 50 MG (25 MG, 2 IN 1 D), ORAL
     Route: 048
     Dates: start: 20090605, end: 20090608
  4. SAVELLA [Suspect]
     Indication: FIBROMYALGIA
     Dosage: 100 MG (50 MG, 2 IN 1 D), ORAL
     Route: 048
     Dates: start: 20090609, end: 20090622
  5. VICODIN [Concomitant]
  6. VALIUM [Concomitant]
  7. MELOXICAM [Concomitant]
  8. LOTREL [Concomitant]
  9. OMEPRAZOLE [Concomitant]
  10. POTASSIUM CHLORIDE [Concomitant]
  11. MECLIZINE [Concomitant]
  12. LASIX [Concomitant]
  13. ESTRADIOL [Concomitant]
  14. REQUIP [Concomitant]
  15. VITAMIN D [Concomitant]

REACTIONS (1)
  - OEDEMA [None]
